FAERS Safety Report 11330403 (Version 1)
Quarter: 2015Q3

REPORT INFORMATION
  Report Type: Spontaneous
  Country: US (occurrence: None)
  Receive Date: 20150730
  Receipt Date: 20150730
  Transmission Date: 20151125
  Serious: No
  Sender: FDA-Public Use
  Company Number: None

PATIENT
  Age: 69 Year
  Sex: Female
  Weight: 64.41 kg

DRUGS (4)
  1. CLINDAMYCIN [Suspect]
     Active Substance: CLINDAMYCIN\CLINDAMYCIN PHOSPHATE
     Indication: DRUG THERAPY
     Dosage: 2 PILLS
     Route: 048
     Dates: start: 20150710, end: 20150710
  2. MULTI VITAMINS GUMMIES [Concomitant]
  3. PROBIOTIC GUMMIES [Concomitant]
  4. BIOTIN GUMMIES [Concomitant]

REACTIONS (6)
  - Cough [None]
  - Abdominal pain upper [None]
  - Wheezing [None]
  - Diarrhoea [None]
  - Haemorrhage [None]
  - Vomiting [None]

NARRATIVE: CASE EVENT DATE: 20150710
